FAERS Safety Report 5022930-2 (Version None)
Quarter: 2006Q2

REPORT INFORMATION
  Report Type: 
  Country: None (occurrence: None)
  Receive Date: 20060426
  Receipt Date: 20060314
  Transmission Date: 20061013
  Serious: Yes (Other)
  Sender: FDA-Public Use
  Company Number: 2006037265

PATIENT
  Age: 80 Year
  Sex: Female
  Weight: 62.5964 kg

DRUGS (6)
  1. LYRICA [Suspect]
     Indication: BACK DISORDER
     Dosage: (ONE DOSE ONLY), ORAL
     Route: 048
     Dates: start: 20060303, end: 20060303
  2. LYRICA [Suspect]
     Indication: PAIN IN EXTREMITY
     Dosage: (ONE DOSE ONLY), ORAL
     Route: 048
     Dates: start: 20060303, end: 20060303
  3. HYZAAR [Concomitant]
  4. LASIX [Concomitant]
  5. METOPROLOL SUCCINATE [Concomitant]
  6. FOSAMAX [Concomitant]

REACTIONS (4)
  - DIZZINESS [None]
  - DYSSTASIA [None]
  - MALAISE [None]
  - NAUSEA [None]
